FAERS Safety Report 14519993 (Version 2)
Quarter: 2018Q1

REPORT INFORMATION
  Report Type: Spontaneous
  Country: CH (occurrence: CH)
  Receive Date: 20180212
  Receipt Date: 20180223
  Transmission Date: 20180509
  Serious: Yes (Hospitalization, Other)
  Sender: FDA-Public Use
  Company Number: CH-PFIZER INC-2018056085

PATIENT
  Age: 44 Year
  Sex: Male

DRUGS (12)
  1. PHENPROCOUMON [Concomitant]
     Active Substance: PHENPROCOUMON
     Indication: AORTIC VALVE REPLACEMENT
     Dosage: UNK
  2. CIPROXIN /00697201/ [Concomitant]
     Active Substance: CIPROFLOXACIN
     Dosage: 500 MG, 2X/DAY (1-0-1-0)
     Route: 048
  3. PANTOZOL [Concomitant]
     Active Substance: PANTOPRAZOLE SODIUM
     Dosage: 40 MG, 1X/DAY (1-0-0-0)
     Route: 048
  4. IPRAMOL [Concomitant]
     Active Substance: ALBUTEROL SULFATE\IPRATROPIUM BROMIDE
     Dosage: 2.5 ML, 3X/DAY (1-1-1-0)
     Route: 055
  5. DALTEPARIN SODIUM [Suspect]
     Active Substance: DALTEPARIN SODIUM
     Indication: ANTICOAGULANT THERAPY
     Dosage: 5000 IU, 2X/DAY
     Route: 058
     Dates: start: 201712, end: 201712
  6. LIORESAL [Concomitant]
     Active Substance: BACLOFEN
     Dosage: 25 MG, 2X/DAY (1-0-0-1)
     Route: 048
  7. QUETIAPIN [Concomitant]
     Active Substance: QUETIAPINE
     Dosage: 25 MG, 1X/DAY (0-0-0-1)
     Route: 048
  8. BIOFLORIN /00079701/ [Concomitant]
     Dosage: UNK, 1X/DAY (1-0-0-0)
     Route: 048
  9. ENOXAPARIN [Suspect]
     Active Substance: ENOXAPARIN
     Indication: AORTIC VALVE REPLACEMENT
     Dosage: 60 MG, 2X/DAY
     Route: 058
     Dates: start: 201711, end: 201712
  10. TAMSULOSIN [Concomitant]
     Active Substance: TAMSULOSIN
     Dosage: 0.4 MG, 1X/DAY (1-0-0-0)
     Route: 048
  11. NICOTINELL [Concomitant]
     Active Substance: NICOTINE
     Dosage: 14 MCG/24H
     Route: 062
  12. DULCOLAX (BISACODYL) [Concomitant]
     Active Substance: BISACODYL
     Dosage: 10 MG, ALTERNATE DAY

REACTIONS (3)
  - Bladder tamponade [Recovered/Resolved]
  - Anaemia [Unknown]
  - Haematuria [Unknown]

NARRATIVE: CASE EVENT DATE: 20171117
